FAERS Safety Report 4731659-7 (Version None)
Quarter: 2005Q3

REPORT INFORMATION
  Report Type: 
  Country: None (occurrence: None)
  Receive Date: 20050725
  Receipt Date: 20041210
  Transmission Date: 20060218
  Serious: Yes (Life-Threatening, Disabling)
  Sender: FDA-Public Use
  Company Number: WAES 0412USA01350

PATIENT
  Age: 58 Year
  Sex: Female

DRUGS (11)
  1. VIOXX [Suspect]
     Indication: ARTHRITIS
     Dosage: 25 MG/DAILY/PO
     Route: 048
     Dates: start: 20020101, end: 20040901
  2. BENICAR [Concomitant]
  3. COZAAR [Concomitant]
  4. KEPPRA [Concomitant]
  5. LANOXIN [Concomitant]
  6. LIPITOR [Concomitant]
  7. NEXIUM [Concomitant]
  8. NORVASC [Concomitant]
  9. SYNTHROID [Concomitant]
  10. TAZIDIME [Concomitant]
  11. TOPROL-XL [Concomitant]

REACTIONS (2)
  - HYPERTENSION [None]
  - OEDEMA PERIPHERAL [None]
